FAERS Safety Report 12639149 (Version 1)
Quarter: 2016Q3

REPORT INFORMATION
  Report Type: Spontaneous
  Country: FR (occurrence: FR)
  Receive Date: 20160810
  Receipt Date: 20160810
  Transmission Date: 20161109
  Serious: Yes (Hospitalization, Other)
  Sender: FDA-Public Use
  Company Number: FR-ABBVIE-16K-056-1693508-00

PATIENT
  Age: 33 Year
  Sex: Female

DRUGS (2)
  1. HUMIRA [Suspect]
     Active Substance: ADALIMUMAB
     Indication: PSORIASIS
     Route: 058
     Dates: start: 20130426, end: 201409
  2. HUMIRA [Suspect]
     Active Substance: ADALIMUMAB
     Route: 058
     Dates: start: 201505, end: 201506

REACTIONS (5)
  - Oophoritis [Recovering/Resolving]
  - Escherichia urinary tract infection [Recovering/Resolving]
  - Endometriosis [Recovering/Resolving]
  - Pelvic adhesions [Unknown]
  - Superinfection [Recovered/Resolved]

NARRATIVE: CASE EVENT DATE: 201409
